FAERS Safety Report 13840245 (Version 1)
Quarter: 2017Q3

REPORT INFORMATION
  Report Type: Spontaneous
  Country: DE (occurrence: DE)
  Receive Date: 20170807
  Receipt Date: 20170807
  Transmission Date: 20171127
  Serious: Yes (Death, Hospitalization, Other)
  Sender: FDA-Public Use
  Company Number: DE-PFIZER INC-2017329783

PATIENT
  Age: 75 Year
  Sex: Female

DRUGS (3)
  1. PALBOCICLIB [Suspect]
     Active Substance: PALBOCICLIB
     Indication: BREAST CANCER METASTATIC
     Dosage: UNK
     Dates: start: 201703
  2. LETROZOLE. [Concomitant]
     Active Substance: LETROZOLE
  3. ZOLEDRONIC ACID [Concomitant]
     Active Substance: ZOLEDRONIC ACID

REACTIONS (8)
  - General physical health deterioration [Unknown]
  - Hepatic failure [Fatal]
  - Nausea [Unknown]
  - Neoplasm progression [Unknown]
  - Decreased appetite [Unknown]
  - Vomiting [Unknown]
  - Dehydration [Unknown]
  - Bone marrow failure [Unknown]

NARRATIVE: CASE EVENT DATE: 201704
